FAERS Safety Report 5574772-7 (Version None)
Quarter: 2007Q4

REPORT INFORMATION
  Report Type: 
  Country: None (occurrence: None)
  Receive Date: 20071226
  Receipt Date: 20071226
  Transmission Date: 20080405
  Serious: Yes (Hospitalization)
  Sender: FDA-Public Use
  Company Number: None

PATIENT
  Sex: Male
  Weight: 76 kg

DRUGS (3)
  1. CARBOPLATIN [Suspect]
     Dosage: 750 MG
     Dates: start: 20060530
  2. ERBITUX [Suspect]
     Dosage: 1380 MG
  3. ALIMTA [Suspect]
     Dosage: 920 MG

REACTIONS (3)
  - DEHYDRATION [None]
  - STRESS [None]
  - SUPRAVENTRICULAR TACHYCARDIA [None]
